FAERS Safety Report 9299858 (Version 1)
Quarter: 2013Q1

REPORT INFORMATION
  Report Type: Spontaneous
  Country: US (occurrence: None)
  Receive Date: 20130107
  Receipt Date: 20130107
  Transmission Date: 20140127
  Serious: No
  Sender: FDA-Public Use
  Company Number: PHHY2011US117439

PATIENT
  Age: 27 Year
  Sex: Female
  Weight: 59.9 kg

DRUGS (1)
  1. GILENYA [Suspect]
     Route: 048
     Dates: start: 20110722

REACTIONS (5)
  - Photophobia [None]
  - Hypoaesthesia [None]
  - Muscular weakness [None]
  - Gait disturbance [None]
  - Headache [None]
